FAERS Safety Report 11311845 (Version 3)
Quarter: 2015Q3

REPORT INFORMATION
  Report Type: Spontaneous
  Country: MT (occurrence: MT)
  Receive Date: 20150727
  Receipt Date: 20150916
  Transmission Date: 20151125
  Serious: Yes (Other)
  Sender: FDA-Public Use
  Company Number: MT-BIOGENIDEC-2015BI102075

PATIENT
  Age: 30 Year
  Sex: Male
  Weight: 80 kg

DRUGS (2)
  1. AMANTADINE [Concomitant]
     Active Substance: AMANTADINE
  2. AVONEX [Suspect]
     Active Substance: INTERFERON BETA-1A
     Indication: RELAPSING-REMITTING MULTIPLE SCLEROSIS
     Route: 030
     Dates: start: 2003

REACTIONS (1)
  - HIV infection [Not Recovered/Not Resolved]

NARRATIVE: CASE EVENT DATE: 201506
